FAERS Safety Report 8119621-8 (Version None)
Quarter: 2012Q1

REPORT INFORMATION
  Report Type: 
  Country: None (occurrence: None)
  Receive Date: 20120207
  Receipt Date: 20120131
  Transmission Date: 20120608
  Serious: Yes (Hospitalization, Other)
  Sender: FDA-Public Use
  Company Number: PHEH2012US001735

PATIENT
  Sex: Female

DRUGS (14)
  1. SYNTHROID [Concomitant]
     Dosage: UNK
  2. BACLOFEN [Concomitant]
     Dosage: UNK
  3. FUROSEMIDE [Concomitant]
     Dosage: UNK
  4. CELEXA [Concomitant]
     Dosage: UNK UKN, UNK
  5. CELEBREX [Concomitant]
  6. CITALOPRAM HYDROBROMIDE [Concomitant]
  7. GILENYA [Suspect]
     Indication: MULTIPLE SCLEROSIS
     Dosage: 0.5 MG, QD
     Route: 048
     Dates: start: 20120111
  8. OMEPRAZOLE [Concomitant]
  9. RANITIDINE [Concomitant]
     Dosage: UNK
  10. BONIVA [Concomitant]
     Dosage: UNK UKN, UNK
  11. ARICEPT [Concomitant]
     Dosage: UNK UKN, UNK
  12. CALCIUM WITH VITAMIN D [Concomitant]
  13. NAMENDA [Concomitant]
  14. DONEPEZIL HCL [Concomitant]
     Dosage: UNK UKN, UNK

REACTIONS (3)
  - PULMONARY EMBOLISM [None]
  - ARTHRITIS [None]
  - CHEST PAIN [None]
